FAERS Safety Report 10574178 (Version 1)
Quarter: 2014Q4

REPORT INFORMATION
  Report Type: Spontaneous
  Country: DE (occurrence: DE)
  Receive Date: 20141110
  Receipt Date: 20141110
  Transmission Date: 20150529
  Serious: Yes (Congenital Anomaly, Other)
  Sender: FDA-Public Use
  Company Number: DE-BRISTOL-MYERS SQUIBB COMPANY-21568761

PATIENT
  Age: 1 Day
  Sex: Male
  Weight: 3 kg

DRUGS (1)
  1. METFORMIN HCL [Suspect]
     Active Substance: METFORMIN HYDROCHLORIDE
     Dosage: DRUG TAKEN BY MOTHER
     Route: 064

REACTIONS (2)
  - Cryptorchism [Not Recovered/Not Resolved]
  - Small for dates baby [Unknown]

NARRATIVE: CASE EVENT DATE: 20140511
